FAERS Safety Report 10272495 (Version 4)
Quarter: 2014Q3

REPORT INFORMATION
  Report Type: Spontaneous
  Country: TR (occurrence: TR)
  Receive Date: 20140702
  Receipt Date: 20140724
  Transmission Date: 20150326
  Serious: Yes (Life-Threatening, Hospitalization)
  Sender: FDA-Public Use
  Company Number: TR-JNJFOC-20140616225

PATIENT
  Sex: Male
  Weight: 79 kg

DRUGS (3)
  1. DELTACORTRIL [Concomitant]
     Active Substance: PREDNISOLONE
     Indication: UNEVALUABLE EVENT
     Dosage: TWICE A DAY, IN THE MORNING AND EVENING
     Route: 065
     Dates: start: 20140211, end: 20140611
  2. ZOLEDRONIC ACID [Concomitant]
     Active Substance: ZOLEDRONIC ACID
     Route: 042
  3. ZYTIGA [Suspect]
     Active Substance: ABIRATERONE ACETATE
     Indication: PROSTATE CANCER METASTATIC
     Route: 048
     Dates: start: 20140211, end: 20140611

REACTIONS (5)
  - Cardiac failure [Not Recovered/Not Resolved]
  - Pneumonia [Not Recovered/Not Resolved]
  - Arteriosclerosis [Not Recovered/Not Resolved]
  - Pulmonary embolism [Not Recovered/Not Resolved]
  - Acute coronary syndrome [Not Recovered/Not Resolved]
